FAERS Safety Report 9274997 (Version 2)
Quarter: 2013Q2

REPORT INFORMATION
  Report Type: Spontaneous
  Country: JP (occurrence: JP)
  Receive Date: 20130507
  Receipt Date: 20130528
  Transmission Date: 20140414
  Serious: Yes (Other)
  Sender: FDA-Public Use
  Company Number: JP-ELI_LILLY_AND_COMPANY-JP201304006064

PATIENT
  Age: 83 Year
  Sex: Female

DRUGS (5)
  1. HUMALOG LISPRO - NPL [Suspect]
     Indication: DIABETES MELLITUS
     Dosage: 16 IU, QD
     Route: 058
     Dates: start: 20130323, end: 20130407
  2. HUMALOG LISPRO - NPL [Suspect]
     Dosage: 28 IU, QD
     Route: 058
     Dates: start: 20130408, end: 20130409
  3. HUMALOG LISPRO - NPL [Suspect]
     Dosage: 8 IU, QD
     Route: 058
     Dates: start: 20130410
  4. GLACTIV [Concomitant]
     Indication: DIABETES MELLITUS
     Dosage: 50 MG, QD
  5. FASTIC [Concomitant]
     Indication: DIABETES MELLITUS
     Dosage: 90 MG, QD

REACTIONS (3)
  - Incorrect dose administered [Recovered/Resolved]
  - Hypoglycaemia [Recovered/Resolved]
  - Hypoglycaemic unconsciousness [Recovered/Resolved]
